FAERS Safety Report 23971816 (Version 1)
Quarter: 2024Q2

REPORT INFORMATION
  Report Type: Spontaneous
  Country: US (occurrence: US)
  Receive Date: 20240613
  Receipt Date: 20240613
  Transmission Date: 20240716
  Serious: No
  Sender: FDA-Public Use
  Company Number: US-PFIZERINC-GRACE01225560

PATIENT
  Age: 28 Year
  Sex: Male
  Weight: 116 kg

DRUGS (1)
  1. CEFTRIAXONE [Suspect]
     Active Substance: CEFTRIAXONE\CEFTRIAXONE SODIUM
     Indication: Endocarditis
     Dosage: 2GM SINGLE DOSE VIAL; INFUSION; 2MG EVERY 12 HOURS,RATE  100ML PER HOUR, OVER 30 MINUTES
     Route: 065
     Dates: start: 20240521

REACTIONS (3)
  - Malaise [Unknown]
  - Flushing [Unknown]
  - Pruritus [Unknown]

NARRATIVE: CASE EVENT DATE: 20240522
